FAERS Safety Report 9776886 (Version 2)
Quarter: 2014Q1

REPORT INFORMATION
  Report Type: Spontaneous
  Country: JP (occurrence: JP)
  Receive Date: 20131221
  Receipt Date: 20140120
  Transmission Date: 20141002
  Serious: Yes (Death, Life-Threatening)
  Sender: FDA-Public Use
  Company Number: JP-BAXTER-2013BAX050957

PATIENT
  Age: 59 Year
  Sex: Male

DRUGS (17)
  1. ENDOXAN 1G [Suspect]
     Indication: LYMPHOMA
     Route: 041
     Dates: start: 20130823, end: 20130823
  2. SULFAMETHOXAZOLE/TRIMETHOPRIM [Suspect]
     Indication: ANTIFUNGAL PROPHYLAXIS
     Route: 048
     Dates: start: 20050519, end: 20060830
  3. SULFAMETHOXAZOLE/TRIMETHOPRIM [Suspect]
     Route: 048
     Dates: start: 20061020, end: 20080530
  4. SULFAMETHOXAZOLE/TRIMETHOPRIM [Suspect]
     Route: 048
     Dates: start: 20130819, end: 20130822
  5. SULFAMETHOXAZOLE/TRIMETHOPRIM [Suspect]
     Route: 048
     Dates: start: 20130906, end: 20130907
  6. SULFAMETHOXAZOLE/TRIMETHOPRIM [Suspect]
     Route: 048
     Dates: start: 20130909, end: 20130909
  7. RITUXAN [Suspect]
     Indication: LYMPHOMA
     Route: 041
     Dates: start: 20130822, end: 20130822
  8. THERARUBICIN [Suspect]
     Indication: LYMPHOMA
     Route: 041
     Dates: start: 20130823, end: 20130823
  9. ONCOVIN [Suspect]
     Indication: LYMPHOMA
     Route: 041
     Dates: start: 20130823, end: 20130823
  10. PREDNISOLONE [Concomitant]
     Indication: LYMPHOMA
     Route: 048
     Dates: start: 201307
  11. PREDNISOLONE [Concomitant]
     Indication: AUTOIMMUNE HAEMOLYTIC ANAEMIA
     Route: 048
     Dates: start: 20130728
  12. PREDNISOLONE [Concomitant]
     Indication: ERYTHEMA MULTIFORME
     Route: 048
     Dates: start: 20130729
  13. PREDNISOLONE [Concomitant]
     Route: 048
     Dates: start: 20130823, end: 20130823
  14. PREDNISOLONE [Concomitant]
     Route: 048
     Dates: start: 20130910
  15. TAKEPRON [Concomitant]
     Indication: PRODUCT USED FOR UNKNOWN INDICATION
     Route: 048
     Dates: start: 20130730
  16. LENDORMIN D [Concomitant]
     Indication: PRODUCT USED FOR UNKNOWN INDICATION
     Route: 048
     Dates: start: 20130826
  17. MINOMYCIN [Concomitant]
     Indication: ERYTHEMA MULTIFORME
     Route: 048
     Dates: start: 20130903, end: 20130912

REACTIONS (2)
  - Toxic epidermal necrolysis [Not Recovered/Not Resolved]
  - Sepsis [Fatal]
